FAERS Safety Report 22302196 (Version 4)
Quarter: 2023Q2

REPORT INFORMATION
  Report Type: Spontaneous
  Country: US (occurrence: US)
  Receive Date: 20230510
  Receipt Date: 20230626
  Transmission Date: 20230722
  Serious: Yes (Other)
  Sender: FDA-Public Use
  Company Number: US-Vifor (International) Inc.-VIT-2023-03326

PATIENT
  Age: 58 Year
  Sex: Male

DRUGS (2)
  1. MIRCERA [Suspect]
     Active Substance: METHOXY POLYETHYLENE GLYCOL-EPOETIN BETA
     Indication: Nephrogenic anaemia
     Dosage: EVERY 2 WEEKS
     Route: 058
     Dates: start: 20230411, end: 20230425
  2. MIRCERA [Suspect]
     Active Substance: METHOXY POLYETHYLENE GLYCOL-EPOETIN BETA
     Dosage: DOSE INCREASED
     Route: 058
     Dates: start: 20230425, end: 20230425

REACTIONS (3)
  - Reticulocyte count increased [Unknown]
  - Aplasia pure red cell [Unknown]
  - Haemoglobin decreased [Recovering/Resolving]

NARRATIVE: CASE EVENT DATE: 20230101
